FAERS Safety Report 17233398 (Version 1)
Quarter: 2020Q1

REPORT INFORMATION
  Report Type: Spontaneous
  Country: NL (occurrence: NL)
  Receive Date: 20200104
  Receipt Date: 20200104
  Transmission Date: 20200409
  Serious: Yes (Death, Hospitalization)
  Sender: FDA-Public Use
  Company Number: NL-TEVA-2019-NL-1161431

PATIENT
  Sex: Male
  Weight: 80 kg

DRUGS (2)
  1. TIMOLOL OOGDRUPPELS, 2,5 MG/ML (MILLIGRAM PER MILLILITER) // TIMOPTOL [Suspect]
     Active Substance: TIMOLOL MALEATE
     Indication: INTRAOCULAR PRESSURE INCREASED
     Dosage: 1 DOSAGE FORMS DAILY; ?1X / DAY
     Dates: start: 2010
  2. TAMSULOSINE [Concomitant]
     Active Substance: TAMSULOSIN HYDROCHLORIDE
     Dates: start: 1997

REACTIONS (1)
  - Abnormal dreams [Fatal]

NARRATIVE: CASE EVENT DATE: 2010
